FAERS Safety Report 8781628 (Version 3)
Quarter: 2012Q4

REPORT INFORMATION
  Report Type: 
  Country: DE (occurrence: DE)
  Receive Date: 20120913
  Receipt Date: 20121031
  Transmission Date: 20130627
  Serious: Yes (Other)
  Sender: FDA-Public Use
  Company Number: DE-GILEAD-2012-0061068

PATIENT
  Age: 47 Year
  Sex: Male

DRUGS (1)
  1. EVIPLERA [Suspect]
     Indication: HIV INFECTION
     Dosage: UNK
     Dates: start: 20120502

REACTIONS (1)
  - Myocardial infarction [Recovered/Resolved]
